FAERS Safety Report 8324730-4 (Version None)
Quarter: 2012Q2

REPORT INFORMATION
  Report Type: 
  Country: None (occurrence: None)
  Receive Date: 20120501
  Receipt Date: 20120420
  Transmission Date: 20120825
  Serious: No
  Sender: FDA-Public Use
  Company Number: US-B.I. PHARMACEUTICALS,INC./RIDGEFIELD-2012-BP-09257BP

PATIENT
  Sex: Male

DRUGS (2)
  1. AVODART [Concomitant]
     Indication: BENIGN PROSTATIC HYPERPLASIA
  2. FLOMAX [Suspect]
     Indication: BENIGN PROSTATIC HYPERPLASIA
     Dosage: 0.4 MG
     Route: 048
     Dates: start: 20120406

REACTIONS (2)
  - FATIGUE [None]
  - CONSTIPATION [None]
